FAERS Safety Report 14701691 (Version 2)
Quarter: 2018Q2

REPORT INFORMATION
  Report Type: Spontaneous
  Country: FR (occurrence: FR)
  Receive Date: 20180331
  Receipt Date: 20180608
  Transmission Date: 20180711
  Serious: Yes (Disabling)
  Sender: FDA-Public Use
  Company Number: FR-009507513-1803FRA010409

PATIENT
  Sex: Female

DRUGS (4)
  1. FOSAVANCE [Suspect]
     Active Substance: ALENDRONATE SODIUM\CHOLECALCIFEROL
     Dosage: UNK
     Route: 048
  2. FOSAVANCE [Suspect]
     Active Substance: ALENDRONATE SODIUM\CHOLECALCIFEROL
     Indication: OSTEOPOROSIS
     Dosage: UNK
     Route: 048
     Dates: start: 2012, end: 201803
  3. CALCIUM (UNSPECIFIED) [Concomitant]
     Active Substance: CALCIUM
  4. VITAMIN D [Concomitant]
     Active Substance: CHOLECALCIFEROL
     Dosage: UNK

REACTIONS (8)
  - Bone pain [Unknown]
  - Haemangioma of bone [Unknown]
  - Arthralgia [Unknown]
  - Bone fissure [Not Recovered/Not Resolved]
  - Arthropathy [Unknown]
  - Bone density abnormal [Unknown]
  - Body mass index decreased [Unknown]
  - Intervertebral disc compression [Unknown]

NARRATIVE: CASE EVENT DATE: 2012
